FAERS Safety Report 20094708 (Version 1)
Quarter: 2021Q4

REPORT INFORMATION
  Report Type: Spontaneous
  Country: US (occurrence: US)
  Receive Date: 20211122
  Receipt Date: 20211122
  Transmission Date: 20220303
  Serious: No
  Sender: FDA-Public Use
  Company Number: US-GE HEALTHCARE-2021CSU004901

PATIENT
  Age: 55 Year
  Sex: Female
  Weight: 91 kg

DRUGS (4)
  1. OMNIPAQUE [Suspect]
     Active Substance: IOHEXOL
     Indication: Computerised tomogram abdomen
     Dosage: 100 ML, SINGLE
     Route: 042
     Dates: start: 20210916, end: 20210916
  2. OMNIPAQUE [Suspect]
     Active Substance: IOHEXOL
     Indication: Diarrhoea
  3. OMNIPAQUE [Suspect]
     Active Substance: IOHEXOL
     Indication: Abdominal pain
  4. OMNIPAQUE [Suspect]
     Active Substance: IOHEXOL
     Indication: Constipation

REACTIONS (3)
  - Sneezing [Recovered/Resolved]
  - Urticaria [Recovered/Resolved]
  - Pharyngeal paraesthesia [Recovered/Resolved]

NARRATIVE: CASE EVENT DATE: 20210916
